FAERS Safety Report 20328978 (Version 1)
Quarter: 2022Q1

REPORT INFORMATION
  Report Type: Spontaneous
  Country: US (occurrence: US)
  Receive Date: 20220112
  Receipt Date: 20220112
  Transmission Date: 20220423
  Serious: No
  Sender: FDA-Public Use
  Company Number: US-BIOMARINAP-US-2022-140525

PATIENT
  Age: 5 Year
  Sex: Male
  Weight: 13.878 kg

DRUGS (1)
  1. VIMIZIM [Suspect]
     Active Substance: ELOSULFASE ALFA
     Indication: Product used for unknown indication
     Dosage: 30 MILLIGRAM, QW
     Route: 042

REACTIONS (3)
  - COVID-19 [Unknown]
  - Pyrexia [Unknown]
  - Headache [Unknown]

NARRATIVE: CASE EVENT DATE: 20211230
